FAERS Safety Report 4417065-3 (Version None)
Quarter: 2004Q2

REPORT INFORMATION
  Report Type: 
  Country: None (occurrence: None)
  Receive Date: 20040629
  Receipt Date: 20040430
  Transmission Date: 20050107
  Serious: No
  Sender: FDA-Public Use
  Company Number: US074927

PATIENT
  Sex: Female

DRUGS (1)
  1. ARANESP [Suspect]
     Indication: ANAEMIA OF MALIGNANT DISEASE
     Dosage: 200 MCG, 1 IN 2 WEEKS
     Dates: start: 20031101

REACTIONS (4)
  - ANOREXIA [None]
  - CHILLS [None]
  - PYREXIA [None]
  - RESPIRATORY TRACT INFECTION [None]
